FAERS Safety Report 9333538 (Version 3)
Quarter: 2013Q2

REPORT INFORMATION
  Report Type: Spontaneous
  Country: US (occurrence: US)
  Receive Date: 20130606
  Receipt Date: 20130627
  Transmission Date: 20140414
  Serious: No
  Sender: FDA-Public Use
  Company Number: US-PFIZER INC-2013171617

PATIENT
  Age: 56 Year
  Sex: Female
  Weight: 58.96 kg

DRUGS (3)
  1. CHANTIX [Suspect]
     Indication: SMOKING CESSATION THERAPY
     Dosage: UNK
     Dates: start: 2008, end: 2008
  2. PRAVASTATIN SODIUM [Suspect]
     Indication: BLOOD CHOLESTEROL INCREASED
     Dosage: 40 MG DAILY
  3. AMLODIPINE [Concomitant]
     Indication: HYPERTENSION
     Dosage: 2.5 MG DAILY

REACTIONS (6)
  - Nausea [Unknown]
  - Abnormal dreams [Unknown]
  - Irritability [Unknown]
  - Weight increased [Unknown]
  - Drug ineffective [Unknown]
  - Tobacco user [Unknown]
